FAERS Safety Report 8240716 (Version 2)
Quarter: 2013Q1

REPORT INFORMATION
  Report Type: Spontaneous
  Country: VE (occurrence: VE)
  Receive Date: 20111111
  Receipt Date: 20130313
  Transmission Date: 20140127
  Serious: Yes (Death, Hospitalization, Other)
  Sender: FDA-Public Use
  Company Number: PHHY2011VE098625

PATIENT
  Age: 79 Year
  Sex: Female

DRUGS (3)
  1. ACLASTA [Suspect]
     Indication: OSTEOPOROSIS
     Dosage: 5 MG, UNK
     Route: 042
     Dates: start: 2010
  2. IDEOS [Concomitant]
     Indication: OSTEOPOROSIS
     Dosage: 500 MG DAILY
     Route: 048
  3. GLUCOSAMINE [Concomitant]
     Indication: OSTEOPOROSIS
     Dosage: 500 MG, DAILY
     Route: 048

REACTIONS (3)
  - Respiratory arrest [Fatal]
  - Pneumonia [Recovering/Resolving]
  - Metastasis [Unknown]
